FAERS Safety Report 15316472 (Version 1)
Quarter: 2018Q3

REPORT INFORMATION
  Report Type: Spontaneous
  Country: US (occurrence: US)
  Receive Date: 20180824
  Receipt Date: 20180824
  Transmission Date: 20181010
  Serious: No
  Sender: FDA-Public Use
  Company Number: US-ELI_LILLY_AND_COMPANY-US201808006807

PATIENT
  Sex: Male

DRUGS (1)
  1. CIALIS [Suspect]
     Active Substance: TADALAFIL
     Indication: PROMOTION OF WOUND HEALING
     Dosage: UNK, UNKNOWN
     Route: 065

REACTIONS (3)
  - Blood testosterone increased [Unknown]
  - Off label use [Unknown]
  - Prostatic specific antigen increased [Unknown]
